FAERS Safety Report 20908566 (Version 1)
Quarter: 2022Q2

REPORT INFORMATION
  Report Type: Spontaneous
  Country: US (occurrence: US)
  Receive Date: 20220603
  Receipt Date: 20220603
  Transmission Date: 20220721
  Serious: Yes (Other)
  Sender: FDA-Public Use
  Company Number: US-APOTEX-2022AP008455

PATIENT
  Age: 59 Year
  Sex: Female

DRUGS (1)
  1. TRAZODONE [Suspect]
     Active Substance: TRAZODONE HYDROCHLORIDE
     Indication: Product used for unknown indication
     Dosage: UNK
     Route: 065

REACTIONS (6)
  - Delirium [Unknown]
  - Aggression [Unknown]
  - Dysarthria [Unknown]
  - Fatigue [Unknown]
  - Confusional state [Unknown]
  - Insomnia [Unknown]

NARRATIVE: CASE EVENT DATE: 20210912
